FAERS Safety Report 5944076-9 (Version None)
Quarter: 2008Q4

REPORT INFORMATION
  Report Type: 
  Country: None (occurrence: None)
  Receive Date: 20081106
  Receipt Date: 20081029
  Transmission Date: 20090506
  Serious: Yes (Other)
  Sender: FDA-Public Use
  Company Number: US-B.I. PHARMACEUTICALS,INC./RIDGEFIELD-2008-BP-16498BP

PATIENT
  Age: 72 Year
  Sex: Male

DRUGS (1)
  1. FLOMAX [Suspect]
     Indication: PROSTATOMEGALY
     Dosage: .4MG
     Route: 048
     Dates: start: 19980101

REACTIONS (4)
  - AORTIC ANEURYSM [None]
  - CARDIAC DISORDER [None]
  - DIALYSIS [None]
  - RENAL FAILURE CHRONIC [None]
